FAERS Safety Report 5026500-1 (Version None)
Quarter: 2006Q2

REPORT INFORMATION
  Report Type: 
  Country: None (occurrence: None)
  Receive Date: 20060615
  Receipt Date: 20060601
  Transmission Date: 20061013
  Serious: Yes (Hospitalization, Other)
  Sender: FDA-Public Use
  Company Number: PHFR2006GB01869

PATIENT
  Age: 41 Year
  Sex: Male

DRUGS (8)
  1. CLOZARIL [Suspect]
     Dosage: 150 MG, QD
     Route: 048
  2. MIDAZOLAM HCL [Concomitant]
     Route: 065
  3. MORPHINE [Concomitant]
     Route: 065
  4. FLUOXETINE [Concomitant]
     Route: 065
  5. CLEXANE [Concomitant]
     Dosage: 40MG / DAY
     Route: 058
  6. METRONIDAZOLE [Concomitant]
     Dosage: 500MG
     Route: 042
  7. IMIPENEM [Concomitant]
     Dosage: 500 MG, QID
     Route: 065
  8. NORADRENALINE [Suspect]
     Route: 065

REACTIONS (6)
  - DRUG INTERACTION [None]
  - INTUBATION [None]
  - LIFE SUPPORT [None]
  - PNEUMONIA [None]
  - SEDATION [None]
  - WHITE BLOOD CELL COUNT INCREASED [None]
